FAERS Safety Report 9484717 (Version 1)
Quarter: 2013Q3

REPORT INFORMATION
  Report Type: Spontaneous
  Country: CA (occurrence: CA)
  Receive Date: 20130828
  Receipt Date: 20130828
  Transmission Date: 20140515
  Serious: Yes (Hospitalization)
  Sender: FDA-Public Use
  Company Number: CA-AMGEN-KDL437472

PATIENT
  Age: 64 Year
  Sex: Female

DRUGS (1)
  1. ENBREL [Suspect]
     Indication: RHEUMATOID ARTHRITIS
     Dosage: UNK UNK, QWK
     Route: 065
     Dates: start: 20100907

REACTIONS (5)
  - Gastrooesophageal reflux disease [Unknown]
  - Vomiting [Unknown]
  - Hyperhidrosis [Unknown]
  - Chest pain [Unknown]
  - Dysgeusia [Unknown]
